FAERS Safety Report 9202028 (Version 2)
Quarter: 2013Q4

REPORT INFORMATION
  Report Type: Spontaneous
  Country: US (occurrence: US)
  Receive Date: 20130401
  Receipt Date: 20131217
  Transmission Date: 20140711
  Serious: Yes (Other)
  Sender: FDA-Public Use
  Company Number: US-BAYER-2013-039783

PATIENT
  Age: 28 Year
  Sex: Female

DRUGS (12)
  1. YAZ [Suspect]
     Dosage: UNK
     Dates: start: 20070217, end: 20101221
  2. YASMIN [Suspect]
     Dosage: UNK
     Dates: start: 20070217, end: 20101221
  3. OCELLA [Suspect]
     Dosage: UNK
     Dates: start: 20070217, end: 20101221
  4. AZITHROMYCIN [Concomitant]
     Dosage: 250 MG, UNK
     Route: 048
     Dates: start: 20100902
  5. CEFDINIR [Concomitant]
     Dosage: 300 MG, UNK
     Route: 048
     Dates: start: 20100923
  6. AVELOX [Concomitant]
     Dosage: 400 MG, UNK
     Route: 048
     Dates: start: 20101024, end: 20101025
  7. TRILIPIX [Concomitant]
     Dosage: 135 MG, UNK
     Route: 048
     Dates: start: 20100919, end: 20101115
  8. LISINOPRIL HYDROCHLORTHIAZID [Concomitant]
     Dosage: 20-12.5MG
     Route: 048
     Dates: start: 20101017, end: 20101115
  9. SINGULAIR [Concomitant]
     Dosage: 10 MG, UNK
     Route: 048
     Dates: start: 20100912, end: 20101120
  10. RANITIDINE [Concomitant]
     Dosage: 150 MG, UNK
     Route: 048
     Dates: start: 20101120
  11. PROMETHAZINE [Concomitant]
     Dosage: 25 MG, UNK
     Route: 048
     Dates: start: 20101120
  12. DICYCLOMINE [Concomitant]
     Dosage: 20 MG, UNK
     Route: 048
     Dates: start: 20101120

REACTIONS (6)
  - Cholelithiasis [None]
  - Injury [None]
  - Pain [None]
  - Emotional distress [None]
  - Anxiety [None]
  - Psychological trauma [None]
